FAERS Safety Report 4285986-0 (Version None)
Quarter: 2004Q1

REPORT INFORMATION
  Report Type: 
  Country: None (occurrence: None)
  Receive Date: 20040205
  Receipt Date: 20031215
  Transmission Date: 20041129
  Serious: Yes (Death, Hospitalization)
  Sender: FDA-Public Use
  Company Number: WAES 0312USA01820

PATIENT
  Age: 73 Year
  Sex: Male

DRUGS (8)
  1. [THERAPY UNSPECIFIED] [Concomitant]
     Indication: REFLUX OESOPHAGITIS
     Route: 048
     Dates: start: 19990412
  2. CERNILTON [Concomitant]
     Indication: BENIGN PROSTATIC HYPERPLASIA
     Route: 048
     Dates: start: 19930517
  3. AMLODIN [Concomitant]
     Indication: HYPERTENSION
     Route: 048
     Dates: start: 20000814
  4. GASTROM [Concomitant]
     Indication: REFLUX OESOPHAGITIS
     Route: 048
     Dates: start: 19950629
  5. PEPCID RPD [Suspect]
     Indication: REFLUX OESOPHAGITIS
     Route: 048
     Dates: start: 19980928, end: 20031010
  6. CEROCRAL [Concomitant]
     Route: 048
     Dates: start: 20010730
  7. GASMOTIN [Concomitant]
     Indication: REFLUX OESOPHAGITIS
     Route: 048
     Dates: start: 20001030
  8. HARNAL [Concomitant]
     Indication: BENIGN PROSTATIC HYPERPLASIA
     Route: 048
     Dates: start: 19970808

REACTIONS (7)
  - APLASTIC ANAEMIA [None]
  - BONE MARROW DEPRESSION [None]
  - PANCYTOPENIA [None]
  - PETECHIAE [None]
  - PNEUMONIA [None]
  - PYREXIA [None]
  - RESPIRATORY FAILURE [None]
